FAERS Safety Report 5088084-1 (Version None)
Quarter: 2006Q3

REPORT INFORMATION
  Report Type: 
  Country: None (occurrence: None)
  Receive Date: 20060823
  Receipt Date: 20060823
  Transmission Date: 20061208
  Serious: No
  Sender: FDA-Public Use
  Company Number: None

PATIENT
  Age: 58 Year
  Sex: Male
  Weight: 35.3806 kg

DRUGS (1)
  1. VANCOMYCIN [Suspect]
     Dosage: 1 GM X 1

REACTIONS (6)
  - ATRIOVENTRICULAR BLOCK [None]
  - CHEST PAIN [None]
  - DYSPNOEA [None]
  - NAUSEA [None]
  - PRURITUS [None]
  - RASH [None]
